FAERS Safety Report 10495759 (Version 2)
Quarter: 2014Q4

REPORT INFORMATION
  Report Type: Report from Study
  Country: DE (occurrence: DE)
  Receive Date: 20141003
  Receipt Date: 20141107
  Transmission Date: 20150528
  Serious: Yes (Life-Threatening, Hospitalization)
  Sender: FDA-Public Use
  Company Number: DE-US-EMD SERONO, INC.-7324234

PATIENT
  Sex: Female

DRUGS (2)
  1. REBIF [Suspect]
     Active Substance: INTERFERON BETA-1A
     Indication: MULTIPLE SCLEROSIS
     Route: 058
  2. URBASON                            /00049601/ [Suspect]
     Active Substance: METHYLPREDNISOLONE
     Indication: MULTIPLE SCLEROSIS RELAPSE
     Route: 042
     Dates: start: 20140910, end: 20140913

REACTIONS (2)
  - Large intestine perforation [Recovered/Resolved]
  - Hypothyroidism [Not Recovered/Not Resolved]

NARRATIVE: CASE EVENT DATE: 201409
